FAERS Safety Report 9306696 (Version 2)
Quarter: 2013Q2

REPORT INFORMATION
  Report Type: Report from Study
  Country: US (occurrence: US)
  Receive Date: 20130523
  Receipt Date: 20130628
  Transmission Date: 20140414
  Serious: No
  Sender: FDA-Public Use
  Company Number: US-ALEXION-A201300869

PATIENT
  Age: 14 Year
  Sex: Female

DRUGS (5)
  1. SOLIRIS [Suspect]
     Indication: PAROXYSMAL NOCTURNAL HAEMOGLOBINURIA
     Dosage: UNK
     Route: 042
     Dates: start: 20130411
  2. SOLIRIS [Suspect]
     Indication: OFF LABEL USE
  3. PENICILLIN [Suspect]
     Indication: PROPHYLAXIS
     Dosage: UNK
  4. LEXAPRO [Concomitant]
     Dosage: UNK
     Dates: start: 20130401
  5. PREDNISONE [Concomitant]
     Dosage: UNK
     Dates: start: 20130401

REACTIONS (16)
  - Pallor [Unknown]
  - Abdominal pain upper [Unknown]
  - Weight decreased [Unknown]
  - Vessel puncture site bruise [Unknown]
  - Contusion [Unknown]
  - Arthropod bite [Unknown]
  - Sinus headache [Unknown]
  - Off label use [Unknown]
  - Chest pain [Unknown]
  - Headache [Recovered/Resolved]
  - Dizziness [Unknown]
  - Throat irritation [Unknown]
  - Nausea [Unknown]
  - Fatigue [Recovered/Resolved]
  - Vomiting [Unknown]
  - Sinusitis [Unknown]
